FAERS Safety Report 10929857 (Version 12)
Quarter: 2016Q1

REPORT INFORMATION
  Report Type: Spontaneous
  Country: BR (occurrence: BR)
  Receive Date: 20150319
  Receipt Date: 20160325
  Transmission Date: 20160525
  Serious: Yes (Other)
  Sender: FDA-Public Use
  Company Number: BR-SA-2015SA033008

PATIENT
  Age: 77 Year
  Sex: Female
  Weight: 83 kg

DRUGS (12)
  1. CLIKSTAR [Concomitant]
     Active Substance: CLIKSTAR
     Indication: DEVICE THERAPY
     Dates: start: 2000
  2. THIOCTACID [Concomitant]
     Active Substance: THIOCTIC ACID
     Indication: PAIN IN EXTREMITY
     Route: 048
     Dates: start: 200511
  3. LANTUS [Suspect]
     Active Substance: INSULIN GLARGINE
     Indication: TYPE 2 DIABETES MELLITUS
     Dosage: 32 UI^S IN THE MORNING AND 32 UI^S AT NIGHT
     Route: 058
  4. VECASTEN [Concomitant]
     Indication: PAIN IN EXTREMITY
     Dates: start: 200911
  5. METFORMIN [Concomitant]
     Active Substance: METFORMIN HYDROCHLORIDE
     Indication: TYPE 2 DIABETES MELLITUS
     Dates: start: 200511
  6. APIDRA [Suspect]
     Active Substance: INSULIN GLULISINE
     Indication: TYPE 2 DIABETES MELLITUS
     Dosage: DOSE:16 UI^S BEFORE THE LUNCH AND 10 UI^S AT NIGHT
     Route: 058
     Dates: start: 2000
  7. SIMVASTATIN. [Concomitant]
     Active Substance: SIMVASTATIN
     Indication: BLOOD CHOLESTEROL
     Dates: start: 200511
  8. LANTUS [Suspect]
     Active Substance: INSULIN GLARGINE
     Indication: TYPE 2 DIABETES MELLITUS
     Dosage: 32 UI^S IN THE MORNING AND 20 UI^S AT NIGHT
     Route: 058
     Dates: start: 2000
  9. APIDRA [Suspect]
     Active Substance: INSULIN GLULISINE
     Indication: TYPE 2 DIABETES MELLITUS
     Dosage: DOSE:18 UNIT(S)
     Route: 058
  10. CLIKSTAR [Suspect]
     Active Substance: CLIKSTAR
     Indication: DEVICE THERAPY
  11. APROZIDE [Suspect]
     Active Substance: HYDROCHLOROTHIAZIDE\IRBESARTAN
     Indication: BLOOD PRESSURE MEASUREMENT
     Route: 065
     Dates: start: 200511
  12. PURAN [Concomitant]
     Active Substance: LEVOTHYROXINE SODIUM
     Indication: THYROID DISORDER
     Dates: start: 200511

REACTIONS (13)
  - Electrocardiogram abnormal [Unknown]
  - Off label use [Unknown]
  - Condition aggravated [Recovering/Resolving]
  - Hyperglycaemia [Recovered/Resolved]
  - Vitamin B12 deficiency [Unknown]
  - Blood glucose abnormal [Not Recovered/Not Resolved]
  - Osteoarthritis [Recovered/Resolved]
  - Arthralgia [Recovered/Resolved]
  - Bone loss [Unknown]
  - Venous occlusion [Recovered/Resolved]
  - Hypertension [Recovering/Resolving]
  - Vitamin D deficiency [Unknown]
  - Nervousness [Recovered/Resolved]

NARRATIVE: CASE EVENT DATE: 2000
